FAERS Safety Report 8962517 (Version 1)
Quarter: 2012Q4

REPORT INFORMATION
  Report Type: 
  Country: AT (occurrence: AT)
  Receive Date: 20121213
  Receipt Date: 20121213
  Transmission Date: 20130627
  Serious: Yes (Congenital Anomaly)
  Sender: FDA-Public Use
  Company Number: AT-SANOFI-AVENTIS-2012SA089879

PATIENT
  Sex: Female

DRUGS (1)
  1. LOVENOX [Suspect]
     Indication: ANTICOAGULANT THERAPY
     Route: 058

REACTIONS (2)
  - Congenital anomaly [Not Recovered/Not Resolved]
  - Exposure during pregnancy [Unknown]
